FAERS Safety Report 10792787 (Version 2)
Quarter: 2015Q2

REPORT INFORMATION
  Report Type: Spontaneous
  Country: US (occurrence: None)
  Receive Date: 20150211
  Receipt Date: 20150415
  Transmission Date: 20150821
  Serious: Yes (Hospitalization)
  Sender: FDA-Public Use
  Company Number: CIO15008250

PATIENT
  Age: 33 Year
  Sex: Female
  Weight: 49.9 kg

DRUGS (3)
  1. PEPTO-BISMOL [Suspect]
     Active Substance: BISMUTH SUBSALICYLATE\CALCIUM CARBONATE
     Indication: NAUSEA
     Dosage: 2 CAPLET, 1 ONLY
     Route: 048
     Dates: start: 20141108, end: 20141108
  2. LAMOTRIGINE. [Concomitant]
     Active Substance: LAMOTRIGINE
  3. IBUPROFEN. [Concomitant]
     Active Substance: IBUPROFEN

REACTIONS (9)
  - Hyperhidrosis [None]
  - Loss of bladder sensation [None]
  - Hypoaesthesia [None]
  - Dysphagia [None]
  - Drug hypersensitivity [None]
  - Headache [None]
  - Sensory loss [None]
  - Feeling hot [None]
  - Eye pain [None]

NARRATIVE: CASE EVENT DATE: 20141108
